FAERS Safety Report 20769249 (Version 1)
Quarter: 2022Q2

REPORT INFORMATION
  Report Type: Report from Study
  Country: CA (occurrence: CA)
  Receive Date: 20220429
  Receipt Date: 20220429
  Transmission Date: 20220721
  Serious: Yes (Other)
  Sender: FDA-Public Use
  Company Number: CA-PFIZER INC-202200610946

PATIENT
  Age: 48 Year
  Sex: Female

DRUGS (8)
  1. METHOTREXATE SODIUM [Suspect]
     Active Substance: METHOTREXATE SODIUM
     Dosage: 20 MG
     Route: 065
  2. CIMZIA [Concomitant]
     Active Substance: CERTOLIZUMAB PEGOL
     Dosage: UNK
     Route: 065
  3. ENBREL [Concomitant]
     Active Substance: ETANERCEPT
     Dosage: UNK, MONTHLY
     Route: 065
  4. ESOMEPRAZOLE MAGNESIUM\NAPROXEN [Concomitant]
     Active Substance: ESOMEPRAZOLE MAGNESIUM\NAPROXEN
     Dosage: UNK, 1X/DAY
     Route: 065
  5. HUMIRA [Concomitant]
     Active Substance: ADALIMUMAB
     Dosage: UNK, MONTHLY
     Route: 065
  6. PREGABALIN [Concomitant]
     Active Substance: PREGABALIN
     Dosage: UNK, 1X/DAY
     Route: 048
  7. REMICADE [Concomitant]
     Active Substance: INFLIXIMAB
     Dosage: UNK, MONTHLY
     Route: 065
  8. SIMPONI [Concomitant]
     Active Substance: GOLIMUMAB
     Dosage: UNK, MONTHLY
     Route: 065

REACTIONS (1)
  - Pulmonary toxicity [Unknown]
